FAERS Safety Report 8309623-0 (Version None)
Quarter: 2012Q2

REPORT INFORMATION
  Report Type: 
  Country: None (occurrence: None)
  Receive Date: 20120423
  Receipt Date: 20120413
  Transmission Date: 20120825
  Serious: Yes (Other)
  Sender: FDA-Public Use
  Company Number: 2012000083

PATIENT
  Age: 68 Year
  Sex: Female

DRUGS (1)
  1. ACEON [Suspect]
     Indication: PRODUCT USED FOR UNKNOWN INDICATION
     Dosage: 10 MG, QD, ORAL
     Route: 048
     Dates: start: 20060101

REACTIONS (2)
  - WHITE BLOOD CELL COUNT INCREASED [None]
  - CHRONIC LYMPHOCYTIC LEUKAEMIA [None]
